FAERS Safety Report 9938053 (Version 2)
Quarter: 2014Q1

REPORT INFORMATION
  Report Type: Spontaneous
  Country: US (occurrence: US)
  Receive Date: 20140303
  Receipt Date: 20140303
  Transmission Date: 20141002
  Serious: Yes (Other)
  Sender: FDA-Public Use
  Company Number: US-ACCORD-022129

PATIENT
  Age: 34 Year
  Sex: Male

DRUGS (2)
  1. TACROLIMUS [Suspect]
     Indication: IMMUNOSUPPRESSION
     Dosage: (3 MG IN?MORNING AND 2.5 MG IN EVENING
  2. PREDNISONE [Concomitant]
     Indication: IMMUNOSUPPRESSION

REACTIONS (1)
  - Post transplant distal limb syndrome [Recovered/Resolved]
